FAERS Safety Report 8761150 (Version 1)
Quarter: 2012Q4

REPORT INFORMATION
  Report Type: 
  Country: FR (occurrence: FR)
  Receive Date: 20120830
  Receipt Date: 20120830
  Transmission Date: 20130627
  Serious: Yes (Other)
  Sender: FDA-Public Use
  Company Number: FR-JNJFOC-20120813909

PATIENT
  Age: 80 Year
  Sex: Female

DRUGS (7)
  1. XARELTO [Suspect]
     Indication: THROMBOSIS PROPHYLAXIS
     Dosage: cumulative dose to first reaction=210mg
     Route: 048
     Dates: start: 20111130, end: 20111220
  2. XARELTO [Suspect]
     Indication: HIP ARTHROPLASTY
     Dosage: cumulative dose to first reaction=210mg
     Route: 048
     Dates: start: 20111130, end: 20111220
  3. EUPANTOL [Concomitant]
  4. TAHOR [Concomitant]
  5. CARDENSIEL [Concomitant]
  6. COZAAR [Concomitant]
  7. LERCAN [Concomitant]

REACTIONS (2)
  - Deep vein thrombosis [Recovered/Resolved]
  - Drug ineffective [Recovered/Resolved]
